FAERS Safety Report 19806590 (Version 1)
Quarter: 2021Q3

REPORT INFORMATION
  Report Type: Spontaneous
  Country: US (occurrence: US)
  Receive Date: 20210908
  Receipt Date: 20210908
  Transmission Date: 20211014
  Serious: No
  Sender: FDA-Public Use
  Company Number: US-AMNEAL PHARMACEUTICALS-2020-AMRX-02240

PATIENT
  Age: 56 Year
  Sex: Male

DRUGS (1)
  1. DIGOXIN. [Suspect]
     Active Substance: DIGOXIN
     Indication: PRODUCT USED FOR UNKNOWN INDICATION
     Dosage: 375 MICROGRAM, MORNING, AT 9AM
     Route: 065

REACTIONS (1)
  - Cardioactive drug level below therapeutic [Unknown]

NARRATIVE: CASE EVENT DATE: 20200706
